FAERS Safety Report 20648364 (Version 2)
Quarter: 2022Q2

REPORT INFORMATION
  Report Type: Spontaneous
  Country: US (occurrence: US)
  Receive Date: 20220329
  Receipt Date: 20220404
  Transmission Date: 20220721
  Serious: Yes (Hospitalization, Other)
  Sender: FDA-Public Use
  Company Number: US-ABBVIE-22K-163-4335328-00

PATIENT
  Sex: Female
  Weight: 72.640 kg

DRUGS (4)
  1. ORILISSA [Suspect]
     Active Substance: ELAGOLIX SODIUM
     Indication: Product used for unknown indication
     Route: 048
     Dates: start: 202003, end: 202203
  2. SYNTHROID [Suspect]
     Active Substance: LEVOTHYROXINE SODIUM
     Indication: Autoimmune thyroiditis
     Route: 048
     Dates: start: 2020
  3. LEVOTHYROXINE SODIUM [Suspect]
     Active Substance: LEVOTHYROXINE SODIUM
     Indication: Hypothyroidism
     Route: 065
  4. ASPIRIN [Concomitant]
     Active Substance: ASPIRIN
     Indication: Cardiovascular event prophylaxis

REACTIONS (18)
  - Carotid artery aneurysm [Not Recovered/Not Resolved]
  - Liver injury [Unknown]
  - Blood urine present [Not Recovered/Not Resolved]
  - Arthropathy [Not Recovered/Not Resolved]
  - Body height decreased [Not Recovered/Not Resolved]
  - Medication error [Recovered/Resolved]
  - Autoimmune thyroiditis [Recovering/Resolving]
  - Thyroid mass [Recovering/Resolving]
  - Migraine [Not Recovered/Not Resolved]
  - Influenza like illness [Not Recovered/Not Resolved]
  - Cataract [Recovered/Resolved]
  - Unevaluable event [Unknown]
  - Abdominal pain [Not Recovered/Not Resolved]
  - Bone density decreased [Unknown]
  - Back pain [Not Recovered/Not Resolved]
  - Endometriosis [Unknown]
  - Arthralgia [Not Recovered/Not Resolved]
  - Pain [Not Recovered/Not Resolved]

NARRATIVE: CASE EVENT DATE: 20200101
